FAERS Safety Report 11128443 (Version 2)
Quarter: 2015Q2

REPORT INFORMATION
  Report Type: Report from Study
  Country: CA (occurrence: CA)
  Receive Date: 20150521
  Receipt Date: 20150529
  Transmission Date: 20150821
  Serious: Yes (Death, Hospitalization)
  Sender: FDA-Public Use
  Company Number: CA-MERCK-1505CAN006838

PATIENT
  Age: 62 Year
  Sex: Male
  Weight: 71.5 kg

DRUGS (9)
  1. MORPHINE [Concomitant]
     Active Substance: MORPHINE
     Indication: PAIN
     Dosage: 45 MG, BID
     Route: 048
     Dates: start: 20150429
  2. STATEX (MORPHINE SULFATE) [Concomitant]
     Active Substance: MORPHINE SULFATE
     Indication: PAIN
     Dosage: TOTAL DAILY DOSE 120 MG, PRN
     Route: 048
     Dates: start: 20150429
  3. COLACE [Concomitant]
     Active Substance: DOCUSATE SODIUM
     Indication: CONSTIPATION PROPHYLAXIS
     Dosage: 200 MG, QD
     Route: 048
     Dates: start: 201412
  4. ZYPREXA [Concomitant]
     Active Substance: OLANZAPINE
     Indication: HYPERHIDROSIS
  5. TYLENOL [Concomitant]
     Active Substance: ACETAMINOPHEN
     Indication: PAIN
     Dosage: TOTAL DAILY DOSE 1G
     Route: 048
     Dates: start: 201412
  6. PMS PANTOPRAZOLE [Concomitant]
     Indication: GASTROOESOPHAGEAL REFLUX DISEASE
     Dosage: 40 MG, QD
     Route: 048
     Dates: start: 201412
  7. PEMBROLIZUMAB. [Suspect]
     Active Substance: PEMBROLIZUMAB
     Indication: TRANSITIONAL CELL CARCINOMA
     Dosage: 200 MG, Q3W
     Route: 042
     Dates: start: 20150508, end: 20150508
  8. MAGNESIUM (UNSPECIFIED) [Concomitant]
     Active Substance: MAGNESIUM
     Indication: PROPHYLAXIS
     Dosage: TOTAL DAILY DOSE: 1660 MG
     Route: 048
     Dates: start: 20150306
  9. ZYPREXA [Concomitant]
     Active Substance: OLANZAPINE
     Indication: DECREASED APPETITE
     Dosage: 5 MG, QD
     Route: 048
     Dates: start: 20150506

REACTIONS (1)
  - Bladder cancer [Fatal]

NARRATIVE: CASE EVENT DATE: 20150513
